FAERS Safety Report 17933856 (Version 1)
Quarter: 2020Q2

REPORT INFORMATION
  Report Type: Spontaneous
  Country: CA (occurrence: CA)
  Receive Date: 20200623
  Receipt Date: 20200623
  Transmission Date: 20200714
  Serious: Yes (Hospitalization)
  Sender: FDA-Public Use
  Company Number: CA-FRESENIUS KABI-FK202006366

PATIENT
  Age: 65 Year
  Sex: Male
  Weight: 71.28 kg

DRUGS (1)
  1. DIPYRIDAMOLE (MANUFACTURER UNKNOWN) [Suspect]
     Active Substance: DIPYRIDAMOLE
     Indication: CARDIAC STRESS TEST
     Route: 042

REACTIONS (4)
  - Heart rate decreased [Unknown]
  - Cardiac arrest [Unknown]
  - Syncope [Unknown]
  - Blood pressure decreased [Unknown]
